FAERS Safety Report 15832768 (Version 2)
Quarter: 2019Q4

REPORT INFORMATION
  Report Type: Spontaneous
  Country: US (occurrence: US)
  Receive Date: 20190116
  Receipt Date: 20191114
  Transmission Date: 20200122
  Serious: No
  Sender: FDA-Public Use
  Company Number: PHHY2019US008942

PATIENT
  Sex: Female

DRUGS (1)
  1. ICAPS L+Z [Suspect]
     Active Substance: LUTEIN\MINERALS\VITAMINS\ZINC
     Indication: PRODUCT USED FOR UNKNOWN INDICATION
     Route: 065

REACTIONS (3)
  - Hypersensitivity [Recovered/Resolved]
  - Product colour issue [Unknown]
  - Pruritus [Recovered/Resolved]
